FAERS Safety Report 5356843-3 (Version None)
Quarter: 2007Q2

REPORT INFORMATION
  Report Type: 
  Country: None (occurrence: None)
  Receive Date: 20070614
  Receipt Date: 20070606
  Transmission Date: 20071010
  Serious: Yes (Other)
  Sender: FDA-Public Use
  Company Number: GB-ROCHE-489701

PATIENT
  Age: 21 Year
  Sex: Female
  Weight: 63.8 kg

DRUGS (2)
  1. ROACCUTANE [Suspect]
     Indication: DRUG USE FOR UNKNOWN INDICATION
     Route: 065
     Dates: start: 20070203
  2. MINOCYCLINE HCL [Concomitant]
     Route: 048
     Dates: start: 20060801, end: 20070101

REACTIONS (4)
  - DRUG EXPOSURE DURING PREGNANCY [None]
  - NO ADVERSE EFFECT [None]
  - PREGNANCY [None]
  - TREATMENT NONCOMPLIANCE [None]
